FAERS Safety Report 6416902-0 (Version None)
Quarter: 2009Q4

REPORT INFORMATION
  Report Type: 
  Country: None (occurrence: None)
  Receive Date: 20091027
  Receipt Date: 20091013
  Transmission Date: 20100525
  Serious: Yes (Life-Threatening)
  Sender: FDA-Public Use
  Company Number: DE-MYLANLABS-2009S1017979

PATIENT
  Age: 71 Year
  Sex: Male
  Weight: 71 kg

DRUGS (3)
  1. CLOZAPINE [Suspect]
     Indication: PSYCHOTIC DISORDER
     Route: 048
     Dates: start: 20090710
  2. ARTANE [Concomitant]
     Indication: DRUG USE FOR UNKNOWN INDICATION
     Route: 048
  3. METAMIZOL /06276702/ [Concomitant]
     Indication: DRUG USE FOR UNKNOWN INDICATION
     Dosage: PRN
     Route: 048

REACTIONS (6)
  - BILIRUBINURIA [None]
  - HYPERBILIRUBINAEMIA [None]
  - INTESTINAL OBSTRUCTION [None]
  - LABORATORY TEST ABNORMAL [None]
  - LEUKOPENIA [None]
  - RENAL FAILURE [None]
